FAERS Safety Report 7429010-7 (Version None)
Quarter: 2011Q2

REPORT INFORMATION
  Report Type: 
  Country: None (occurrence: None)
  Receive Date: 20110421
  Receipt Date: 20110408
  Transmission Date: 20111010
  Serious: Yes (Hospitalization)
  Sender: FDA-Public Use
  Company Number: FR-BAYER-201025048GPV

PATIENT
  Age: 62 Year
  Sex: Male

DRUGS (8)
  1. NEXAVAR [Suspect]
     Dosage: 400 MG (DAILY DOSE), QD, ORAL
     Route: 048
     Dates: start: 20091107, end: 20091115
  2. NEXAVAR [Suspect]
     Indication: HEPATIC NEOPLASM MALIGNANT
     Dosage: 800 MG (DAILY DOSE), QD, ORAL
     Route: 048
     Dates: start: 20091010, end: 20091030
  3. STILNOX [Concomitant]
     Dosage: 10 MG (DAILY DOSE), QD,
     Dates: start: 20091130, end: 20091215
  4. ZYLORIC [Concomitant]
     Dosage: 100 MG (DAILY DOSE), QD,
     Dates: start: 20091207, end: 20091228
  5. COLCHIMAX [Concomitant]
     Dosage: UNK
     Dates: start: 20091130, end: 20091222
  6. NEXAVAR [Suspect]
     Dosage: 400 MG (DAILY DOSE), QD, ORAL
     Route: 048
     Dates: start: 20091101, end: 20091104
  7. TRIATEC [Concomitant]
     Dosage: 1.25 MG (DAILY DOSE), QD,
     Dates: start: 20091130, end: 20091215
  8. SPECIAFOLDINE [Concomitant]
     Dosage: 5 MG (DAILY DOSE), QD,
     Dates: start: 20091130, end: 20091228

REACTIONS (5)
  - ASCITES [None]
  - FALL [None]
  - JAUNDICE [None]
  - SYNCOPE [None]
  - GENERAL PHYSICAL HEALTH DETERIORATION [None]
